FAERS Safety Report 7789815-X (Version None)
Quarter: 2011Q3

REPORT INFORMATION
  Report Type: 
  Country: None (occurrence: None)
  Receive Date: 20110930
  Receipt Date: 20110428
  Transmission Date: 20111222
  Serious: No
  Sender: FDA-Public Use
  Company Number: US-ASTRAZENECA-2010SE15072

PATIENT
  Age: 85 Year
  Sex: Female

DRUGS (1)
  1. ARIMIDEX [Suspect]
     Route: 048
     Dates: start: 20070101

REACTIONS (3)
  - VISUAL IMPAIRMENT [None]
  - IMPAIRED DRIVING ABILITY [None]
  - MACULAR DEGENERATION [None]
